FAERS Safety Report 8474333-6 (Version None)
Quarter: 2012Q2

REPORT INFORMATION
  Report Type: 
  Country: None (occurrence: None)
  Receive Date: 20120621
  Receipt Date: 20120605
  Transmission Date: 20120825
  Serious: Yes (Hospitalization, Other)
  Sender: FDA-Public Use
  Company Number: 2011P1004032

PATIENT
  Sex: Female

DRUGS (11)
  1. NEXIUM [Concomitant]
  2. FOSAMAX [Concomitant]
  3. NAPROXEN (ALEVE) [Concomitant]
  4. FENTANYL PATCH 25 MCG/HR (NO PREF. NAM...0E) [Suspect]
     Dosage: 1 PATCH;Q48H;TDER
     Route: 062
  5. TOPROL-XL [Concomitant]
  6. ASPIRIN [Concomitant]
  7. NEURONTIN [Concomitant]
  8. NORCO [Concomitant]
  9. CALCIUM CARBONATE [Concomitant]
  10. CRESTOR [Concomitant]
  11. VITAMIN D [Concomitant]

REACTIONS (31)
  - HIATUS HERNIA [None]
  - DEHYDRATION [None]
  - ANTICONVULSANT DRUG LEVEL BELOW THERAPEUTIC [None]
  - WEIGHT DECREASED [None]
  - ANTIBIOTIC RESISTANT STAPHYLOCOCCUS TEST POSITIVE [None]
  - MUSCULAR WEAKNESS [None]
  - CONVULSION [None]
  - NAUSEA [None]
  - DIARRHOEA [None]
  - OSTEOARTHRITIS [None]
  - MYALGIA [None]
  - FALL [None]
  - IRRITABLE BOWEL SYNDROME [None]
  - ABDOMINAL DISTENSION [None]
  - MUSCULOSKELETAL STIFFNESS [None]
  - FATIGUE [None]
  - ARTHRALGIA [None]
  - CARPAL TUNNEL DECOMPRESSION [None]
  - GASTROOESOPHAGEAL REFLUX DISEASE [None]
  - OESOPHAGITIS [None]
  - FLATULENCE [None]
  - ANTINUCLEAR ANTIBODY POSITIVE [None]
  - CREPITATIONS [None]
  - TENOSYNOVITIS [None]
  - ECCHYMOSIS [None]
  - CONSTIPATION [None]
  - DYSPEPSIA [None]
  - SENSATION OF FOREIGN BODY [None]
  - TENDON RUPTURE [None]
  - ANXIETY [None]
  - ABDOMINAL PAIN [None]
